FAERS Safety Report 8820345 (Version 1)
Quarter: 2012Q4

REPORT INFORMATION
  Report Type: 
  Country: US (occurrence: US)
  Receive Date: 20121002
  Receipt Date: 20121002
  Transmission Date: 20130627
  Serious: No
  Sender: FDA-Public Use
  Company Number: US-009507513-1209USA008827

PATIENT
  Sex: Male

DRUGS (1)
  1. PEGINTRON [Suspect]
     Dosage: 80 Microgram, qw,(PEGINTRON REDIPEN PEN IJ KIT 80 Y)
     Route: 058
     Dates: start: 201203

REACTIONS (4)
  - Drug dose omission [Unknown]
  - Drug dose omission [Unknown]
  - Product quality issue [Unknown]
  - No adverse event [Unknown]
